FAERS Safety Report 19502165 (Version 4)
Quarter: 2022Q4

REPORT INFORMATION
  Report Type: Spontaneous
  Country: US (occurrence: US)
  Receive Date: 20210707
  Receipt Date: 20221129
  Transmission Date: 20230113
  Serious: Yes (Hospitalization)
  Sender: FDA-Public Use
  Company Number: US-EMERGENT BIOSOLUTIONS CANADA INC.-21000084SP

PATIENT

DRUGS (5)
  1. NARCAN [Suspect]
     Active Substance: NALOXONE HYDROCHLORIDE
     Indication: Overdose
     Dosage: 4 MILLIGRAM
     Route: 045
     Dates: start: 20210623, end: 20210623
  2. NARCAN [Suspect]
     Active Substance: NALOXONE HYDROCHLORIDE
     Dosage: 4 MILLIGRAM
     Route: 045
     Dates: start: 20210623, end: 20210623
  3. NARCAN [Suspect]
     Active Substance: NALOXONE HYDROCHLORIDE
     Dosage: 4 MILLIGRAM
     Route: 045
     Dates: start: 20210623, end: 20210623
  4. NARCAN [Suspect]
     Active Substance: NALOXONE HYDROCHLORIDE
     Dosage: 4 MILLIGRAM
     Route: 045
     Dates: start: 20210623, end: 20210623
  5. NARCAN [Suspect]
     Active Substance: NALOXONE HYDROCHLORIDE
     Dosage: 4 MILLIGRAM
     Route: 045
     Dates: start: 20210623, end: 20210623

REACTIONS (4)
  - Transient ischaemic attack [Unknown]
  - Seizure [Unknown]
  - Therapeutic product effect delayed [Unknown]
  - Product administration error [Unknown]

NARRATIVE: CASE EVENT DATE: 20210623
